FAERS Safety Report 12579844 (Version 2)
Quarter: 2017Q3

REPORT INFORMATION
  Report Type: Spontaneous
  Country: FR (occurrence: FR)
  Receive Date: 20160721
  Receipt Date: 20170927
  Transmission Date: 20171127
  Serious: Yes (Hospitalization, Other)
  Sender: FDA-Public Use
  Company Number: FR-INDIVIOR LIMITED-INDV-092254-2016

PATIENT
  Age: 42 Year
  Sex: Male

DRUGS (2)
  1. SUBUTEX [Suspect]
     Active Substance: BUPRENORPHINE HYDROCHLORIDE
     Indication: PRODUCT USED FOR UNKNOWN INDICATION
     Dosage: 8MG DAILY IN THE MORNING, FOR 1 YEAR
     Route: 042
     Dates: start: 2015, end: 2016
  2. SUBUTEX [Suspect]
     Active Substance: BUPRENORPHINE HYDROCHLORIDE
     Dosage: 6MG DAILY
     Route: 065
     Dates: start: 201602

REACTIONS (13)
  - Mesenteric artery embolism [Unknown]
  - Acute kidney injury [Unknown]
  - Endocarditis staphylococcal [Recovering/Resolving]
  - Renal tubular necrosis [Unknown]
  - Pulmonary embolism [Recovering/Resolving]
  - Thrombocytopenia [Unknown]
  - Septic shock [Unknown]
  - Venous thrombosis [Unknown]
  - Gastrointestinal haemorrhage [Unknown]
  - Lung abscess [Recovering/Resolving]
  - Drug abuse [Recovered/Resolved with Sequelae]
  - Pneumonia [Unknown]
  - Intentional product use issue [Recovered/Resolved with Sequelae]

NARRATIVE: CASE EVENT DATE: 2015
